FAERS Safety Report 16580044 (Version 4)
Quarter: 2019Q3

REPORT INFORMATION
  Report Type: Spontaneous
  Country: NL (occurrence: NL)
  Receive Date: 20190716
  Receipt Date: 20190930
  Transmission Date: 20191004
  Serious: Yes (Hospitalization)
  Sender: FDA-Public Use
  Company Number: NL-MYLANLABS-2019M1066004

PATIENT
  Age: 58 Year
  Sex: Male

DRUGS (13)
  1. ALPRAZOLAM MYLAN 0,25 MG [Suspect]
     Active Substance: ALPRAZOLAM
     Dosage: 0.25 MILLIGRAM, TID
     Dates: start: 20190720, end: 20190723
  2. ALPRAZOLAM MYLAN 0,25 MG [Suspect]
     Active Substance: ALPRAZOLAM
     Dosage: 0.25 MILLIGRAM, QD
     Dates: start: 20190727
  3. NITROGLYCERINE [Concomitant]
     Active Substance: NITROGLYCERIN
     Dosage: UNK
  4. ALPRAZOLAM MYLAN 0,5 MG [Suspect]
     Active Substance: ALPRAZOLAM
     Indication: POST-TRAUMATIC STRESS DISORDER
     Dosage: 0.5 MILLIGRAM, 5XD
     Dates: start: 20170714, end: 20181029
  5. ALPRAZOLAM MYLAN 0,25 MG [Suspect]
     Active Substance: ALPRAZOLAM
     Indication: POST-TRAUMATIC STRESS DISORDER
     Dosage: UNK
  6. METOPROLOL SUCCINATE. [Concomitant]
     Active Substance: METOPROLOL SUCCINATE
     Indication: HYPERTENSION
     Dosage: 10 MILLIGRAM
  7. ALPRAZOLAM MYLAN 0,5 MG [Suspect]
     Active Substance: ALPRAZOLAM
     Indication: SOMATIC SYMPTOM DISORDER
     Dosage: UNK
  8. ALPRAZOLAM MYLAN 0,25 MG [Suspect]
     Active Substance: ALPRAZOLAM
     Dosage: 0.25 MILLIGRAM, QID
     Dates: start: 20190705, end: 20190713
  9. ALPRAZOLAM MYLAN 0,5 MG [Suspect]
     Active Substance: ALPRAZOLAM
     Dosage: 0.5 MILLIGRAM, BID
     Dates: start: 20181029, end: 20190708
  10. ALPRAZOLAM MYLAN 0,25 MG [Suspect]
     Active Substance: ALPRAZOLAM
     Dosage: 0.25 MILLIGRAM, BID
     Dates: start: 20181029, end: 20190705
  11. ALPRAZOLAM MYLAN 0,25 MG [Suspect]
     Active Substance: ALPRAZOLAM
     Dosage: 0.25 MILLIGRAM, QD
     Dates: start: 20190731
  12. ALPRAZOLAM MYLAN 0,25 MG [Suspect]
     Active Substance: ALPRAZOLAM
     Dosage: 0.5 DOSAGE FORM (BROKEN 0.25 MG TABLET AND TOOK HALF OF IT)
     Dates: start: 20190805, end: 20190810
  13. TEMAZEPAM. [Concomitant]
     Active Substance: TEMAZEPAM
     Indication: MYALGIA
     Dosage: 10 MILLIGRAM, 6XD

REACTIONS (14)
  - Withdrawal syndrome [Unknown]
  - Hyperhidrosis [Unknown]
  - Walking disability [Unknown]
  - Injury [Unknown]
  - Hyperhidrosis [Not Recovered/Not Resolved]
  - Fall [Unknown]
  - Scrotal disorder [Not Recovered/Not Resolved]
  - Rash erythematous [Unknown]
  - Back pain [Unknown]
  - Testicular disorder [Unknown]
  - Muscle twitching [Unknown]
  - Myalgia [Unknown]
  - Bursitis [Not Recovered/Not Resolved]
  - Haematuria [Unknown]

NARRATIVE: CASE EVENT DATE: 20161227
